FAERS Safety Report 9101895 (Version 1)
Quarter: 2013Q1

REPORT INFORMATION
  Report Type: Spontaneous
  Country: BE (occurrence: BE)
  Receive Date: 20130218
  Receipt Date: 20130218
  Transmission Date: 20140127
  Serious: Yes (Hospitalization)
  Sender: FDA-Public Use
  Company Number: PHHY2013BE014290

PATIENT
  Age: 7 Year
  Sex: Male

DRUGS (1)
  1. BIOCLAVID [Suspect]
     Indication: INFECTION PROPHYLAXIS
     Dosage: UNK UKN, UNK

REACTIONS (4)
  - Neck pain [Unknown]
  - Diplegia [Unknown]
  - Convulsion [Unknown]
  - Rash [Unknown]
